FAERS Safety Report 21916275 (Version 1)
Quarter: 2023Q1

REPORT INFORMATION
  Report Type: Spontaneous
  Country: IT (occurrence: None)
  Receive Date: 20230126
  Receipt Date: 20230126
  Transmission Date: 20230418
  Serious: Yes (Hospitalization, Other)
  Sender: FDA-Public Use
  Company Number: 2023A010961

PATIENT
  Age: 71 Year
  Sex: Female

DRUGS (6)
  1. OMEPRAZOLE [Suspect]
     Active Substance: OMEPRAZOLE
     Dosage: 10.0MG ONCE/SINGLE ADMINISTRATION
     Route: 048
     Dates: start: 20220621, end: 20220621
  2. VENLAFAXINE HYDROCHLORIDE [Suspect]
     Active Substance: VENLAFAXINE HYDROCHLORIDE
     Dosage: 150.0MG UNKNOWN
     Route: 048
     Dates: start: 20220621, end: 20220621
  3. CLONAZEPAM [Suspect]
     Active Substance: CLONAZEPAM
     Dosage: AMOUNT PER ADMINISTRATION: 2.5 MG/ML2.5MG/ML UNKNOWN
     Route: 048
     Dates: start: 20220621, end: 20220621
  4. TEGRETOL [Suspect]
     Active Substance: CARBAMAZEPINE
     Dosage: 200.0MG UNKNOWN
     Route: 048
     Dates: start: 20220621, end: 20220621
  5. REMERON [Suspect]
     Active Substance: MIRTAZAPINE
     Route: 048
     Dates: start: 20220621, end: 20220621
  6. TRAMADOL HYDROCHLORIDE [Suspect]
     Active Substance: TRAMADOL HYDROCHLORIDE
     Dosage: AMOUNT PER ADMINISTRATION: 100 MG/ML100.0MG/ML UNKNOWN
     Route: 048
     Dates: start: 20220621, end: 20220621

REACTIONS (3)
  - Sopor [Recovering/Resolving]
  - Coma [Recovering/Resolving]
  - Drug abuse [Recovering/Resolving]

NARRATIVE: CASE EVENT DATE: 20220621
